FAERS Safety Report 15312962 (Version 1)
Quarter: 2018Q3

REPORT INFORMATION
  Report Type: Report from Study
  Country: US (occurrence: US)
  Receive Date: 20180823
  Receipt Date: 20180823
  Transmission Date: 20181010
  Serious: Yes (Hospitalization)
  Sender: FDA-Public Use
  Company Number: US-ACTELION-A-NJ2018-177590

PATIENT
  Age: 71 Year
  Sex: Female
  Weight: 72.11 kg

DRUGS (3)
  1. WARFARIN [Concomitant]
     Active Substance: WARFARIN
  2. TRACLEER [Suspect]
     Active Substance: BOSENTAN
     Indication: PULMONARY ARTERIAL HYPERTENSION
     Dosage: 125 MG, BID
     Route: 048
  3. ADEMPAS [Concomitant]
     Active Substance: RIOCIGUAT

REACTIONS (6)
  - Haemorrhoids [Unknown]
  - Anaemia [Unknown]
  - Rectal haemorrhage [Unknown]
  - Loss of consciousness [Unknown]
  - Transfusion [Unknown]
  - Large intestine polyp [Unknown]
